FAERS Safety Report 7363613-3 (Version None)
Quarter: 2011Q1

REPORT INFORMATION
  Report Type: 
  Country: None (occurrence: None)
  Receive Date: 20110321
  Receipt Date: 20110311
  Transmission Date: 20110831
  Serious: Yes (Other)
  Sender: FDA-Public Use
  Company Number: DE-PFIZER INC-2011054293

PATIENT
  Age: 62 Year
  Sex: Male
  Weight: 103 kg

DRUGS (9)
  1. CAMPTOSAR [Suspect]
     Indication: COLON CANCER
     Dosage: 80 MG/M2, IN 30 MIN
  2. EMEND [Concomitant]
     Dosage: 1+2 TABLETS AS NEEDED
  3. CETUXIMAB [Concomitant]
     Dosage: 250 MG/M2, IN 1 HOUR
     Route: 042
  4. RANITIDINE [Concomitant]
     Dosage: 1 AMPULLA
     Route: 042
  5. KEVATRIL [Concomitant]
     Dosage: 1 MG, UNK
  6. ATROPIN [Concomitant]
     Dosage: 0.25 MG, UNK
     Route: 058
  7. FENISTIL [Concomitant]
     Dosage: 1 AMPULLA
     Route: 042
  8. FOLINIC ACID [Concomitant]
     Dosage: 500 MG/M2, IN 2 HOURS
  9. FLUOROURACIL [Concomitant]
     Dosage: 2000 MG/M2, IN 24 HOURS

REACTIONS (5)
  - ACNE PUSTULAR [None]
  - DRY SKIN [None]
  - SKIN TIGHTNESS [None]
  - SKIN REACTION [None]
  - SKIN ATROPHY [None]
